FAERS Safety Report 7898059-2 (Version None)
Quarter: 2011Q4

REPORT INFORMATION
  Report Type: 
  Country: None (occurrence: None)
  Receive Date: 20111103
  Receipt Date: 20111031
  Transmission Date: 20120403
  Serious: Yes (Disabling)
  Sender: FDA-Public Use
  Company Number: AUR-APL-2011-05653

PATIENT

DRUGS (2)
  1. ZIDOVUDINE [Suspect]
     Indication: PROPHYLAXIS AGAINST HIV INFECTION
     Dosage: (4 MG/KG),ORAL
     Route: 048
  2. ZIDOVUDINE [Suspect]
     Indication: EXPOSURE TO COMMUNICABLE DISEASE
     Dosage: (4 MG/KG),ORAL
     Route: 048

REACTIONS (1)
  - NYSTAGMUS [None]
